FAERS Safety Report 9435850 (Version 2)
Quarter: 2013Q3

REPORT INFORMATION
  Report Type: Spontaneous
  Country: US (occurrence: US)
  Receive Date: 20130801
  Receipt Date: 20130919
  Transmission Date: 20140515
  Serious: No
  Sender: FDA-Public Use
  Company Number: US-B.I. PHARMACEUTICALS,INC./RIDGEFIELD-2013-BI-22541BP

PATIENT
  Age: 70 Year
  Sex: Female
  Weight: 132 kg

DRUGS (9)
  1. PRADAXA [Suspect]
     Indication: ATRIAL FIBRILLATION
     Dosage: 300 MG
     Route: 048
     Dates: start: 201208
  2. PRADAXA [Suspect]
     Indication: ATRIAL FLUTTER
  3. LIPITOR [Concomitant]
     Indication: BLOOD CHOLESTEROL INCREASED
     Dosage: 5 MG
     Route: 048
  4. METOPROLOL [Concomitant]
     Indication: ATRIAL FIBRILLATION
     Dosage: 100 MG
     Route: 048
  5. HUMULOG INSULIN [Concomitant]
     Indication: DIABETES MELLITUS
     Dosage: 15 U
     Route: 058
  6. LISINOPRIL HCT [Concomitant]
     Indication: HYPERTENSION
     Route: 048
  7. LEVOTHYROXINE [Concomitant]
     Indication: HYPOTHYROIDISM
     Route: 048
  8. METFORMIN [Concomitant]
     Indication: DIABETES MELLITUS
     Dosage: 2000 MG
     Route: 048
  9. LANTUS INSULIN [Concomitant]
     Indication: DIABETES MELLITUS
     Dosage: 28 U
     Route: 058

REACTIONS (7)
  - Diarrhoea [Not Recovered/Not Resolved]
  - Abdominal pain [Not Recovered/Not Resolved]
  - Dyspepsia [Not Recovered/Not Resolved]
  - Contusion [Not Recovered/Not Resolved]
  - Laceration [Recovered/Resolved]
  - Rash pruritic [Not Recovered/Not Resolved]
  - Off label use [Not Recovered/Not Resolved]
